FAERS Safety Report 4490718-7 (Version None)
Quarter: 2004Q4

REPORT INFORMATION
  Report Type: 
  Country: None (occurrence: None)
  Receive Date: 20041102
  Receipt Date: 20041026
  Transmission Date: 20050328
  Serious: Yes (Hospitalization)
  Sender: FDA-Public Use
  Company Number: FR-ROCHE-384368

PATIENT
  Age: 25 Year
  Sex: Male

DRUGS (3)
  1. CELLCEPT [Suspect]
     Route: 048
  2. CELLCEPT [Suspect]
     Dosage: REDUCED DOSAGE AFTER THE ONSET OF THE EVENT.
     Route: 048
  3. RAPAMUNE [Suspect]
     Indication: DRUG USE FOR UNKNOWN INDICATION
     Route: 048
     Dates: end: 20040809

REACTIONS (1)
  - FOLLICULITIS [None]
